FAERS Safety Report 7546622-0 (Version None)
Quarter: 2011Q2

REPORT INFORMATION
  Report Type: 
  Country: None (occurrence: None)
  Receive Date: 20110614
  Receipt Date: 20110609
  Transmission Date: 20111010
  Serious: Yes (Other)
  Sender: FDA-Public Use
  Company Number: JP-PFIZER INC-2011120026

PATIENT
  Age: 46 Year
  Sex: Male

DRUGS (1)
  1. EPLERENONE [Suspect]
     Indication: GLOMERULONEPHRITIS CHRONIC
     Dosage: 25 MG, 1X/DAY
     Route: 048
     Dates: start: 20110512

REACTIONS (1)
  - SCLERITIS [None]
